FAERS Safety Report 25691202 (Version 1)
Quarter: 2025Q3

REPORT INFORMATION
  Report Type: Spontaneous
  Country: CA (occurrence: CA)
  Receive Date: 20250818
  Receipt Date: 20250818
  Transmission Date: 20251021
  Serious: Yes (Other)
  Sender: PFIZER
  Company Number: CA-PFIZER INC-202400270545

PATIENT
  Age: 51 Year
  Sex: Female

DRUGS (10)
  1. RUXIENCE [Suspect]
     Active Substance: RITUXIMAB-PVVR
     Indication: Immunoglobulin G4 related disease
     Route: 042
     Dates: start: 20241108
  2. RUXIENCE [Suspect]
     Active Substance: RITUXIMAB-PVVR
     Route: 042
     Dates: start: 20241202
  3. DAYVIGO [Concomitant]
     Active Substance: LEMBOREXANT
  4. ESTRADIOL [Concomitant]
     Active Substance: ESTRADIOL
  5. PREDNISONE [Concomitant]
     Active Substance: PREDNISONE
  6. PREDNISONE [Concomitant]
     Active Substance: PREDNISONE
  7. RISEDRONATE SODIUM [Concomitant]
     Active Substance: RISEDRONATE SODIUM
  8. SEPTRA [Concomitant]
     Active Substance: SULFAMETHOXAZOLE\TRIMETHOPRIM
     Dosage: 80 MG, 1X/DAY
     Dates: start: 20241107
  9. TRAZODONE [Concomitant]
     Active Substance: TRAZODONE HYDROCHLORIDE
  10. ZOLOFT [Concomitant]
     Active Substance: SERTRALINE HYDROCHLORIDE

REACTIONS (12)
  - Colitis microscopic [Unknown]
  - Rash [Recovered/Resolved]
  - Oral herpes [Unknown]
  - Rash [Recovering/Resolving]
  - Urticaria [Not Recovered/Not Resolved]
  - Hypersensitivity [Recovering/Resolving]
  - Burning sensation [Unknown]
  - Rash macular [Recovering/Resolving]
  - Lymphadenopathy [Unknown]
  - Neutrophil count decreased [Unknown]
  - Large intestine infection [Unknown]
  - Off label use [Unknown]

NARRATIVE: CASE EVENT DATE: 20241101
